FAERS Safety Report 11510853 (Version 1)
Quarter: 2015Q3

REPORT INFORMATION
  Report Type: Report from Study
  Country: AU (occurrence: AU)
  Receive Date: 20150915
  Receipt Date: 20150915
  Transmission Date: 20151125
  Serious: No
  Sender: FDA-Public Use
  Company Number: AU-UCBSA-096921

PATIENT
  Age: 51 Year
  Sex: Male
  Weight: 59.1 kg

DRUGS (6)
  1. *CARBAMAZEPINE [Suspect]
     Active Substance: CARBAMAZEPINE
     Dosage: 100 MG LCM/ 200 MG CBZ
     Route: 048
     Dates: start: 20121119, end: 20130423
  2. LIPITOR [Concomitant]
     Active Substance: ATORVASTATIN CALCIUM
     Indication: HYPERCHOLESTEROLAEMIA
     Dosage: 10 MG, ONCE DAILY (QD)
     Route: 048
     Dates: start: 20130722
  3. *CARBAMAZEPINE [Suspect]
     Active Substance: CARBAMAZEPINE
     Indication: EPILEPSY
     Dosage: 200 MG LCM/ 400 MG CBZ
     Route: 048
     Dates: start: 20130502
  4. BLACKMORES MULTIVITAMIN [Concomitant]
     Indication: VITAMIN SUPPLEMENTATION
     Dosage: 2 CAPSULES QD
     Route: 048
     Dates: start: 20130722
  5. SALPRAZ [Concomitant]
     Indication: DYSPEPSIA
     Dosage: 40 MG, ONCE DAILY (QD)
     Dates: start: 20121010
  6. PANADOL [Concomitant]
     Active Substance: ACETAMINOPHEN
     Indication: INFLUENZA
     Dosage: 500 MG, 3X/DAY (TID)
     Route: 048
     Dates: start: 20130819

REACTIONS (1)
  - Sinus bradycardia [Recovered/Resolved]

NARRATIVE: CASE EVENT DATE: 20130826
